FAERS Safety Report 5389392-7 (Version None)
Quarter: 2007Q3

REPORT INFORMATION
  Report Type: 
  Country: None (occurrence: None)
  Receive Date: 20070717
  Receipt Date: 20070705
  Transmission Date: 20080115
  Serious: Yes (Other)
  Sender: FDA-Public Use
  Company Number: BE-ROCHE-505931

PATIENT
  Age: 31 Year
  Sex: Male
  Weight: 86 kg

DRUGS (2)
  1. COPEGUS [Suspect]
     Route: 048
     Dates: start: 20060202, end: 20070109
  2. PEGASYS [Suspect]
     Route: 058
     Dates: start: 20060202, end: 20070109

REACTIONS (2)
  - ABORTION MISSED [None]
  - NO ADVERSE REACTION [None]
